FAERS Safety Report 21921579 (Version 3)
Quarter: 2023Q1

REPORT INFORMATION
  Report Type: Spontaneous
  Country: JP (occurrence: JP)
  Receive Date: 20230127
  Receipt Date: 20230214
  Transmission Date: 20230417
  Serious: Yes (Other)
  Sender: FDA-Public Use
  Company Number: JP-ABBVIE-4285261

PATIENT
  Age: 50 Year
  Sex: Female

DRUGS (2)
  1. GLECAPREVIR\PIBRENTASVIR [Suspect]
     Active Substance: GLECAPREVIR\PIBRENTASVIR
     Indication: Hepatic cirrhosis
     Route: 048
  2. GLECAPREVIR\PIBRENTASVIR [Suspect]
     Active Substance: GLECAPREVIR\PIBRENTASVIR
     Indication: Hepatic cirrhosis
     Dosage: DECREASED DOSE
     Route: 048

REACTIONS (3)
  - Autoimmune hepatitis [Recovering/Resolving]
  - Liver injury [Recovered/Resolved]
  - Liver injury [Recovering/Resolving]
